FAERS Safety Report 4713649-3 (Version None)
Quarter: 2005Q3

REPORT INFORMATION
  Report Type: 
  Country: None (occurrence: None)
  Receive Date: 20050712
  Receipt Date: 20050701
  Transmission Date: 20060218
  Serious: No
  Sender: FDA-Public Use
  Company Number: CLOF-10037

PATIENT
  Age: 62 Year
  Sex: Female

DRUGS (8)
  1. CLOFARABINE [Suspect]
     Indication: CHLOROMA
     Dosage: 46 MG QD X 5 IV
     Route: 042
     Dates: start: 20041013, end: 20041017
  2. DAUNORUBICIN HCL [Concomitant]
  3. FENTANYL [Concomitant]
  4. NOZANAN INFUSION [Concomitant]
  5. ONDANSETRON [Concomitant]
  6. CORSADYL MOUTHWASH [Concomitant]
  7. FRUSEMIDE [Concomitant]
  8. CLEXANE [Concomitant]

REACTIONS (4)
  - ENCEPHALOPATHY [None]
  - GRAND MAL CONVULSION [None]
  - HAEMORRHOIDAL HAEMORRHAGE [None]
  - URINARY TRACT INFECTION PSEUDOMONAL [None]
